FAERS Safety Report 15853474 (Version 1)
Quarter: 2019Q1

REPORT INFORMATION
  Report Type: Spontaneous
  Country: US (occurrence: US)
  Receive Date: 20190122
  Receipt Date: 20190122
  Transmission Date: 20190417
  Serious: No
  Sender: FDA-Public Use
  Company Number: US-SA-2019SA014972

PATIENT
  Sex: Male

DRUGS (1)
  1. DUPIXENT [Suspect]
     Active Substance: DUPILUMAB
     Indication: DEMYELINATING POLYNEUROPATHY
     Dosage: 300 MG, QOW
     Route: 058
     Dates: start: 20180206

REACTIONS (2)
  - Erythema [Not Recovered/Not Resolved]
  - Product use in unapproved indication [Unknown]
